FAERS Safety Report 25586296 (Version 5)
Quarter: 2025Q3

REPORT INFORMATION
  Report Type: Spontaneous
  Country: US (occurrence: US)
  Receive Date: 20250721
  Receipt Date: 20250918
  Transmission Date: 20251020
  Serious: No
  Sender: PFIZER
  Company Number: US-PFIZER INC-202500143655

PATIENT
  Age: 10 Year
  Sex: Female
  Weight: 28.12 kg

DRUGS (1)
  1. GENOTROPIN [Suspect]
     Active Substance: SOMATROPIN
     Indication: Growth hormone deficiency
     Dosage: 1.4MG EVERY NIGHT BY INJECTION
     Dates: start: 2023

REACTIONS (3)
  - Device use error [Unknown]
  - Device breakage [Unknown]
  - Device leakage [Unknown]
